FAERS Safety Report 6361101-4 (Version None)
Quarter: 2009Q3

REPORT INFORMATION
  Report Type: 
  Country: None (occurrence: None)
  Receive Date: 20090918
  Receipt Date: 20090908
  Transmission Date: 20100115
  Serious: Yes (Other)
  Sender: FDA-Public Use
  Company Number: US-AVENTIS-200918027US

PATIENT
  Sex: Male

DRUGS (9)
  1. LANTUS [Suspect]
     Dosage: DOSE: UNK
     Route: 058
     Dates: start: 20090201, end: 20090801
  2. LANTUS [Suspect]
     Route: 058
  3. OPTICLIK (INSULIN INJECTION PEN) [Suspect]
     Dates: start: 20090801
  4. METFORMIN HCL [Concomitant]
     Dosage: DOSE: UNK
  5. ACTOS [Concomitant]
     Dosage: DOSE: UNK
     Dates: start: 20090101, end: 20090501
  6. ORAL ANTIDIABETICS [Concomitant]
     Dosage: DOSE: UNK
     Dates: start: 20090101
  7. ARICEPT [Concomitant]
     Dosage: DOSE: UNK
  8. NAMENDA [Concomitant]
     Dosage: DOSE: UNK
  9. GLYBURIDE [Concomitant]
     Dosage: DOSE: UNK

REACTIONS (5)
  - BLOOD GLUCOSE INCREASED [None]
  - BLOOD POTASSIUM DECREASED [None]
  - DEHYDRATION [None]
  - HYPERHIDROSIS [None]
  - HYPOGLYCAEMIA [None]
